FAERS Safety Report 15496226 (Version 2)
Quarter: 2018Q4

REPORT INFORMATION
  Report Type: Spontaneous
  Country: FR (occurrence: FR)
  Receive Date: 20181012
  Receipt Date: 20181126
  Transmission Date: 20190205
  Serious: Yes (Other)
  Sender: FDA-Public Use
  Company Number: FR-009507513-1810FRA001692

PATIENT
  Age: 32 Year
  Sex: Male
  Weight: 70 kg

DRUGS (6)
  1. FIASP [Concomitant]
     Active Substance: INSULIN ASPART
     Indication: TYPE 1 DIABETES MELLITUS
     Dosage: BOLUS
     Dates: start: 2016
  2. IPERTEN [Concomitant]
     Active Substance: MANIDIPINE
     Indication: HYPERTENSION
     Dosage: 1 DOSAGE FORM, QD
     Dates: start: 201810
  3. RAMIPRIL. [Concomitant]
     Active Substance: RAMIPRIL
     Indication: NEPHROPATHY
  4. DIPROSTENE [Suspect]
     Active Substance: BETAMETHASONE DIPROPIONATE\BETAMETHASONE SODIUM PHOSPHATE
     Indication: MENISCUS INJURY
     Dosage: UNK; IN THE KNEE
     Route: 014
     Dates: start: 20180927
  5. TAHOR [Concomitant]
     Active Substance: ATORVASTATIN CALCIUM
     Indication: HYPERCHOLESTEROLAEMIA
     Dosage: 1 DOSAGE FORM, QD
     Dates: start: 2017
  6. RAMIPRIL. [Concomitant]
     Active Substance: RAMIPRIL
     Indication: HYPERCHOLESTEROLAEMIA
     Dosage: 1 DOSAGE FORM, QD
     Dates: start: 2017

REACTIONS (3)
  - Glycosylated haemoglobin increased [Unknown]
  - Hyperglycaemia [Unknown]
  - Diabetes mellitus inadequate control [Unknown]

NARRATIVE: CASE EVENT DATE: 20180927
